FAERS Safety Report 8209819-2 (Version None)
Quarter: 2012Q1

REPORT INFORMATION
  Report Type: 
  Country: None (occurrence: None)
  Receive Date: 20120314
  Receipt Date: 20120305
  Transmission Date: 20120608
  Serious: Yes (Hospitalization)
  Sender: FDA-Public Use
  Company Number: FR-ASTRAZENECA-2012SE16334

PATIENT
  Age: 28913 Day
  Sex: Female

DRUGS (15)
  1. PREDNISOLONE [Concomitant]
  2. ACUPAN [Suspect]
     Indication: PRODUCT USED FOR UNKNOWN INDICATION
     Route: 065
  3. KETOPROFEN [Suspect]
     Indication: PRODUCT USED FOR UNKNOWN INDICATION
     Route: 065
  4. NEXIUM [Concomitant]
     Route: 048
  5. KETAMINE HCL [Suspect]
     Indication: ANAESTHESIA
     Route: 065
     Dates: start: 20111101
  6. CEFAZOLIN [Suspect]
     Indication: PRODUCT USED FOR UNKNOWN INDICATION
     Route: 065
  7. ACETAMINOPHEN [Suspect]
     Indication: PRODUCT USED FOR UNKNOWN INDICATION
     Route: 065
  8. SEVOFLURANE [Suspect]
     Indication: ANAESTHESIA
     Route: 065
     Dates: start: 20111101
  9. LEVOTHYROXINE SODIUM [Concomitant]
  10. NICARDIPINE HYDROCHLORIDE [Concomitant]
  11. BISOPROLOL FUMARATE [Concomitant]
  12. TRACRIUM [Suspect]
     Indication: ANAESTHESIA
     Route: 065
     Dates: start: 20111101
  13. IMOVANE [Concomitant]
  14. DIPRIVAN [Suspect]
     Indication: ANAESTHESIA
     Route: 042
     Dates: start: 20111101
  15. LASIX [Concomitant]

REACTIONS (4)
  - RASH MACULO-PAPULAR [None]
  - TOXIC SKIN ERUPTION [None]
  - EPIDERMAL NECROSIS [None]
  - PRURITUS [None]
